FAERS Safety Report 4694677-3 (Version None)
Quarter: 2005Q2

REPORT INFORMATION
  Report Type: 
  Country: None (occurrence: None)
  Receive Date: 20050620
  Receipt Date: 20050609
  Transmission Date: 20051028
  Serious: Yes (Life-Threatening, Hospitalization)
  Sender: FDA-Public Use
  Company Number: 2005-0137

PATIENT
  Age: 81 Year
  Sex: Female
  Weight: 49 kg

DRUGS (3)
  1. RANIPLEX [Suspect]
     Dosage: 300MG PER DAY
     Route: 042
     Dates: start: 20050519, end: 20050519
  2. ONDANSETRON [Suspect]
     Dosage: 8MG PER DAY
     Route: 042
     Dates: start: 20050519, end: 20050519
  3. SOLU-MEDROL [Suspect]
     Dosage: 8MG PER DAY
     Route: 042
     Dates: start: 20050519, end: 20050519

REACTIONS (8)
  - BLOOD PRESSURE DECREASED [None]
  - CARDIO-RESPIRATORY ARREST [None]
  - HEART RATE DECREASED [None]
  - HYPERSENSITIVITY [None]
  - LOSS OF CONSCIOUSNESS [None]
  - MALAISE [None]
  - OXYGEN SATURATION DECREASED [None]
  - VOMITING [None]
